FAERS Safety Report 10027568 (Version 1)
Quarter: 2014Q1

REPORT INFORMATION
  Report Type: Spontaneous
  Country: BR (occurrence: None)
  Receive Date: 20140218
  Receipt Date: 20140218
  Transmission Date: 20141002
  Serious: Yes (Other)
  Sender: FDA-Public Use
  Company Number: KAD201402-000137

PATIENT
  Sex: 0

DRUGS (2)
  1. RIBAVIRIN [Suspect]
     Indication: CHRONIC HEPATITIS C
  2. PEGYLATED INTERFERON (PEGYLATED INTERFERON) [Suspect]
     Indication: CHRONIC HEPATITIS C

REACTIONS (2)
  - Tuberculoid leprosy [None]
  - Type 1 lepra reaction [None]
